FAERS Safety Report 17897323 (Version 3)
Quarter: 2024Q3

REPORT INFORMATION
  Report Type: Spontaneous
  Country: US (occurrence: US)
  Receive Date: 20200615
  Receipt Date: 20240905
  Transmission Date: 20241017
  Serious: Yes (Other)
  Sender: PFIZER
  Company Number: US-PFIZER INC-2020229931

PATIENT
  Age: 55 Year
  Sex: Female
  Weight: 63.5 kg

DRUGS (2)
  1. XELJANZ [Suspect]
     Active Substance: TOFACITINIB CITRATE
     Indication: Rheumatoid arthritis
     Dosage: 5 MG, 2X/DAY, [MORNING AND EVENING]
     Route: 048
     Dates: start: 20190816, end: 202407
  2. MINERALS\VITAMINS [Concomitant]
     Active Substance: MINERALS\VITAMINS
     Dosage: UNK

REACTIONS (3)
  - COVID-19 [Recovering/Resolving]
  - Illness [Recovering/Resolving]
  - Chest pain [Recovering/Resolving]

NARRATIVE: CASE EVENT DATE: 20200401
